FAERS Safety Report 21250149 (Version 2)
Quarter: 2022Q3

REPORT INFORMATION
  Report Type: Spontaneous
  Country: US (occurrence: US)
  Receive Date: 20220824
  Receipt Date: 20220825
  Transmission Date: 20221027
  Serious: Yes (Hospitalization, Other)
  Sender: FDA-Public Use
  Company Number: US-SA-SAC20220823000887

PATIENT
  Age: 29 Year
  Sex: Male

DRUGS (3)
  1. ALPROLIX [Suspect]
     Active Substance: EFTRENONACOG ALFA
     Indication: Factor IX deficiency
     Dosage: INFUSE 8000 UNITS (7200-8800) SLOW IV PUSH EVERY 7 DAYS X 30 DAYS
     Route: 042
     Dates: start: 202203
  2. ALPROLIX [Suspect]
     Active Substance: EFTRENONACOG ALFA
     Dosage: 4427 IU
     Route: 042
     Dates: start: 202203
  3. ALPROLIX [Suspect]
     Active Substance: EFTRENONACOG ALFA
     Dosage: 282 IU
     Route: 042
     Dates: start: 202203

REACTIONS (4)
  - Nephrolithiasis [Unknown]
  - Haematoma [Unknown]
  - Haemorrhage [Unknown]
  - Blood urine present [Unknown]

NARRATIVE: CASE EVENT DATE: 20220101
